FAERS Safety Report 7860212-1 (Version None)
Quarter: 2011Q4

REPORT INFORMATION
  Report Type: 
  Country: None (occurrence: None)
  Receive Date: 20111027
  Receipt Date: 20111021
  Transmission Date: 20120403
  Serious: Yes (Hospitalization)
  Sender: FDA-Public Use
  Company Number: CO-ROCHE-1006240

PATIENT
  Sex: Female

DRUGS (1)
  1. MYCOPHENOLATE MOFETIL (CELLCEPT) [Suspect]
     Indication: HEART TRANSPLANT
     Route: 048
     Dates: start: 20110924

REACTIONS (1)
  - TRANSPLANT REJECTION [None]
